FAERS Safety Report 23562272 (Version 1)
Quarter: 2024Q1

REPORT INFORMATION
  Report Type: Spontaneous
  Country: FR (occurrence: FR)
  Receive Date: 20240226
  Receipt Date: 20240226
  Transmission Date: 20240409
  Serious: Yes (Other)
  Sender: FDA-Public Use
  Company Number: None

PATIENT
  Age: 58 Year
  Sex: Male

DRUGS (4)
  1. TEICOPLANIN [Suspect]
     Active Substance: TEICOPLANIN
     Indication: Staphylococcal infection
     Dosage: 800 MG, BID
     Route: 042
     Dates: start: 20240112, end: 20240116
  2. TEICOPLANIN [Suspect]
     Active Substance: TEICOPLANIN
     Dosage: 800 MG, QD: 800 MG/J
     Route: 042
     Dates: start: 20240117, end: 20240123
  3. RIFAMPIN [Suspect]
     Active Substance: RIFAMPIN
     Indication: Staphylococcal infection
     Dosage: 900 MG, QD: 900MG/J
     Route: 048
     Dates: start: 20240124, end: 20240129
  4. LEVOFLOXACIN [Concomitant]
     Active Substance: LEVOFLOXACIN
     Indication: Staphylococcal infection
     Dosage: 750 MG, QD: 750MG/J
     Route: 048
     Dates: start: 20240112

REACTIONS (1)
  - Rash maculo-papular [Recovering/Resolving]

NARRATIVE: CASE EVENT DATE: 20240129
